FAERS Safety Report 9398606 (Version 1)
Quarter: 2013Q3

REPORT INFORMATION
  Report Type: Report from Study
  Country: US (occurrence: US)
  Receive Date: 20130712
  Receipt Date: 20130712
  Transmission Date: 20140515
  Serious: Yes (Hospitalization)
  Sender: FDA-Public Use
  Company Number: US-ASTRAZENECA-2009SE13566

PATIENT
  Age: 64 Year
  Sex: Female

DRUGS (11)
  1. ATACAND HCT [Suspect]
     Indication: HYPERTENSION
     Dosage: 32+12.5 MG DAILY
     Route: 048
     Dates: start: 20090720, end: 20090801
  2. CADUET [Suspect]
     Indication: HYPERTENSION
     Dosage: 10+20 MG DAILY
     Route: 048
     Dates: start: 20090718, end: 20090731
  3. TOPROL [Concomitant]
  4. HYTRIN [Concomitant]
     Dates: start: 20090726
  5. LASIX [Concomitant]
     Dates: start: 20090501
  6. GLUCOTROL XL [Concomitant]
     Dates: start: 20090401
  7. PLAVIX [Concomitant]
     Dates: start: 20090501
  8. ASPIRIN [Concomitant]
  9. SYNTHROID [Concomitant]
     Dates: start: 20090801
  10. DRISDOL [Concomitant]
  11. NORVASC [Concomitant]
     Dates: start: 20090801

REACTIONS (3)
  - Gouty arthritis [Recovered/Resolved]
  - Renal failure [Recovered/Resolved]
  - Pain in extremity [Recovered/Resolved]
